FAERS Safety Report 6295741-8 (Version None)
Quarter: 2009Q3

REPORT INFORMATION
  Report Type: 
  Country: None (occurrence: None)
  Receive Date: 20090803
  Receipt Date: 20090803
  Transmission Date: 20100115
  Serious: Yes (Other)
  Sender: FDA-Public Use
  Company Number: None

PATIENT
  Age: 58 Year
  Sex: Female
  Weight: 83.9154 kg

DRUGS (2)
  1. HALFLYTELY BOWEL PREP KIT [Suspect]
     Indication: COLONOSCOPY
     Dosage: 64 OZ. 8OZ. GLASS - EVERY 10 MIN.
     Dates: start: 20090708
  2. BISACODYL TABLETS [Suspect]
     Dosage: 2 TABLETS ONCE
     Dates: start: 20090708

REACTIONS (7)
  - CHILLS [None]
  - DIZZINESS [None]
  - HEADACHE [None]
  - HEART RATE DECREASED [None]
  - NAUSEA [None]
  - RETCHING [None]
  - VOMITING [None]
